FAERS Safety Report 6222038-4 (Version None)
Quarter: 2009Q2

REPORT INFORMATION
  Report Type: 
  Country: None (occurrence: None)
  Receive Date: 20090608
  Receipt Date: 20090608
  Transmission Date: 20091009
  Serious: Yes (Death)
  Sender: FDA-Public Use
  Company Number: None

PATIENT
  Sex: Female
  Weight: 47.6 kg

DRUGS (2)
  1. TAXOL [Suspect]
     Dosage: 234 MG
     Dates: end: 20090427
  2. HERCEPTIN [Suspect]
     Dosage: 400 MG
     Dates: end: 20090427

REACTIONS (10)
  - BLOOD SODIUM DECREASED [None]
  - DEHYDRATION [None]
  - DIARRHOEA [None]
  - INTESTINAL ISCHAEMIA [None]
  - INTESTINAL PERFORATION [None]
  - MENTAL STATUS CHANGES [None]
  - PERITONITIS [None]
  - PNEUMOPERITONEUM [None]
  - REFUSAL OF TREATMENT BY PATIENT [None]
  - THROMBOSIS [None]
